FAERS Safety Report 8925260 (Version 1)
Quarter: 2012Q4

REPORT INFORMATION
  Report Type: 
  Country: DE (occurrence: DE)
  Receive Date: 20121126
  Receipt Date: 20121126
  Transmission Date: 20130627
  Serious: Yes (Hospitalization, Other)
  Sender: FDA-Public Use
  Company Number: DE-PFIZER INC-2012292719

PATIENT
  Age: 73 Year
  Sex: Female
  Weight: 77 kg

DRUGS (15)
  1. GENOTROPIN [Suspect]
     Dosage: 0.2 mg, 1x/day,7 injections/week
     Route: 058
     Dates: start: 20010220
  2. SOTABETA [Concomitant]
     Indication: ESSENTIAL HYPERTENSION
     Dosage: UNK
  3. VIGANTOLETTEN ^BAYER^ [Concomitant]
     Indication: OSTEOPOROSIS
     Dosage: UNK
  4. OPIPRAMOL HYDROCHLORIDE [Concomitant]
     Indication: DEPRESSIVE DISORDER
     Dosage: UNK
  5. CORTISONE ACETATE [Concomitant]
     Indication: ACTH DECREASED
     Dosage: UNK
     Dates: start: 19900701
  6. LEVOTHYROXINE [Concomitant]
     Indication: TSH DECREASE
     Dosage: UNK
     Dates: start: 19900701
  7. LEVOTHYROXINE [Concomitant]
     Indication: PRIMARY HYPOTHYROIDISM
  8. MARCEN [Concomitant]
     Indication: DEPRESSIVE DISORDER
     Dosage: UNK
     Dates: start: 19980115
  9. METFORMIN [Concomitant]
     Indication: IDDM
     Dosage: UNK
     Dates: start: 20010715
  10. METFORMIN [Concomitant]
     Indication: NIDDM
  11. PROVAS COMP [Concomitant]
     Indication: ESSENTIAL HYPERTENSION, UNSPECIFIED
     Dosage: UNK
     Dates: start: 20010715
  12. HYDROCHLOROTHIAZIDE [Concomitant]
     Indication: ESSENTIAL HYPERTENSION, UNSPECIFIED
     Dosage: UNK
     Dates: start: 20010715
  13. NEXIUM [Concomitant]
     Indication: OESOPHAGITIS
     Dosage: UNK
     Dates: start: 20010715
  14. MAGNESIUM [Concomitant]
     Indication: HYPOPOTASSAEMIA
     Dosage: UNK
     Dates: start: 20010715
  15. CARBUTAMIDE [Concomitant]
     Indication: TYPE II DIABETES MELLITUS
     Dosage: UNK
     Dates: start: 20010115

REACTIONS (1)
  - Salmonellosis [Unknown]
